FAERS Safety Report 6086744-7 (Version None)
Quarter: 2009Q1

REPORT INFORMATION
  Report Type: 
  Country: None (occurrence: None)
  Receive Date: 20090213
  Receipt Date: 20090128
  Transmission Date: 20090719
  Serious: Yes (Other)
  Sender: FDA-Public Use
  Company Number: B0557837A

PATIENT
  Sex: 0

DRUGS (2)
  1. MELPHALAN (FORMULATION UNKNOWN) (GENERIC) (MELPHALAN) [Suspect]
     Indication: MULTIPLE MYELOMA
     Dosage: 200 MG/M2
  2. HEMATOPOETIC PROGENITOR CELLS HUMAN [Concomitant]

REACTIONS (2)
  - DRUG TOXICITY [None]
  - STEM CELL TRANSPLANT [None]
